FAERS Safety Report 8553345-8 (Version None)
Quarter: 2012Q3

REPORT INFORMATION
  Report Type: 
  Country: None (occurrence: None)
  Receive Date: 20120731
  Receipt Date: 20120724
  Transmission Date: 20120928
  Serious: Yes (Other)
  Sender: FDA-Public Use
  Company Number: GR-ROCHE-1088697

PATIENT
  Sex: Female

DRUGS (3)
  1. HERCEPTIN [Suspect]
     Indication: BREAST CANCER
     Dosage: 3-4 WEEKS INTERVAL
     Dates: start: 20100801
  2. PACLITAXEL [Concomitant]
     Indication: BREAST CANCER
  3. CARBOPLATIN [Concomitant]
     Indication: BREAST CANCER

REACTIONS (3)
  - PLEURAL EFFUSION [None]
  - NEOPLASM RECURRENCE [None]
  - ATELECTASIS [None]
